FAERS Safety Report 7569700-9 (Version None)
Quarter: 2011Q2

REPORT INFORMATION
  Report Type: 
  Country: None (occurrence: None)
  Receive Date: 20110624
  Receipt Date: 20110622
  Transmission Date: 20111010
  Serious: No
  Sender: FDA-Public Use
  Company Number: US-PFIZER INC-2011138964

PATIENT

DRUGS (2)
  1. PROTONIX [Suspect]
     Indication: HAEMATEMESIS
     Dosage: 40 MG, DAILY
     Dates: start: 20110401
  2. INSULIN [Concomitant]
     Indication: DIABETES MELLITUS
     Dosage: UNK

REACTIONS (1)
  - DRUG SCREEN FALSE POSITIVE [None]
